FAERS Safety Report 5520039-2 (Version None)
Quarter: 2007Q4

REPORT INFORMATION
  Report Type: 
  Country: None (occurrence: None)
  Receive Date: 20071116
  Receipt Date: 20071108
  Transmission Date: 20080405
  Serious: Yes (Hospitalization)
  Sender: FDA-Public Use
  Company Number: CH-AMGEN-US241658

PATIENT
  Age: 42 Year
  Sex: Female
  Weight: 62 kg

DRUGS (3)
  1. ENBREL [Suspect]
     Indication: POLYARTHRITIS
  2. METHOTREXATE [Suspect]
     Dosage: UNKNOWN
     Dates: end: 20070101
  3. OLFEN [Concomitant]
     Route: 048

REACTIONS (2)
  - ARTHRITIS BACTERIAL [None]
  - TOOTH ABSCESS [None]
